FAERS Safety Report 16641577 (Version 1)
Quarter: 2019Q3

REPORT INFORMATION
  Report Type: Spontaneous
  Country: US (occurrence: US)
  Receive Date: 20190729
  Receipt Date: 20190729
  Transmission Date: 20191004
  Serious: No
  Sender: FDA-Public Use
  Company Number: US-GLENMARK PHARMACEUTICALS-2018GMK037723

PATIENT

DRUGS (4)
  1. DOXYCYCLINE. [Concomitant]
     Active Substance: DOXYCYCLINE
     Indication: ANTIBIOTIC THERAPY
     Dosage: 200 MG, QD
     Route: 048
     Dates: start: 20180928
  2. LATANOPROST. [Concomitant]
     Active Substance: LATANOPROST
     Indication: OPEN ANGLE GLAUCOMA
     Dosage: 1 GTT, PER EYE
     Route: 047
  3. MUPIROCIN. [Suspect]
     Active Substance: MUPIROCIN
     Indication: POST PROCEDURAL INFECTION
     Dosage: UNK, TID
     Route: 061
     Dates: start: 20180926, end: 20181003
  4. MUPIROCIN. [Suspect]
     Active Substance: MUPIROCIN
     Indication: WOUND

REACTIONS (2)
  - No adverse event [Unknown]
  - Product use in unapproved indication [Unknown]

NARRATIVE: CASE EVENT DATE: 20180926
